FAERS Safety Report 8042056-3 (Version None)
Quarter: 2012Q1

REPORT INFORMATION
  Report Type: 
  Country: None (occurrence: None)
  Receive Date: 20120112
  Receipt Date: 20120109
  Transmission Date: 20120608
  Serious: Yes (Death)
  Sender: FDA-Public Use
  Company Number: US-CELGENEUS-163-21880-11113956

PATIENT
  Sex: Male

DRUGS (8)
  1. GABAPENTIN [Concomitant]
     Route: 065
  2. REVLIMID [Suspect]
     Indication: MYELODYSPLASTIC SYNDROME
     Dosage: 10 MILLIGRAM
     Route: 048
     Dates: start: 20100801
  3. AMBIEN [Concomitant]
     Route: 065
  4. NEUPOGEN [Concomitant]
     Route: 065
  5. ALLEGRA [Concomitant]
     Route: 065
  6. OMEPRAZOLE [Concomitant]
     Route: 065
  7. LEVOFLOXACIN [Concomitant]
     Route: 065
  8. LOVASTATIN [Concomitant]
     Route: 065

REACTIONS (1)
  - DEATH [None]
